FAERS Safety Report 16842000 (Version 1)
Quarter: 2019Q3

REPORT INFORMATION
  Report Type: Spontaneous
  Country: None (occurrence: US)
  Receive Date: 20190923
  Receipt Date: 20190923
  Transmission Date: 20191005
  Serious: No
  Sender: FDA-Public Use
  Company Number: US-TEIKOKU PHARMA USA-TPU2019-00649

PATIENT
  Sex: Male

DRUGS (1)
  1. LIDOCAINE PATCH [Suspect]
     Active Substance: LIDOCAINE
     Indication: CARPAL TUNNEL SYNDROME
     Dosage: BILATERAL WRISTS
     Route: 061

REACTIONS (3)
  - Application site paraesthesia [Unknown]
  - Drug ineffective for unapproved indication [Unknown]
  - Middle insomnia [Unknown]
